FAERS Safety Report 6696506-5 (Version None)
Quarter: 2010Q2

REPORT INFORMATION
  Report Type: 
  Country: None (occurrence: None)
  Receive Date: 20100426
  Receipt Date: 20100413
  Transmission Date: 20101027
  Serious: Yes (Other)
  Sender: FDA-Public Use
  Company Number: US-JNJFOC-20100404908

PATIENT
  Sex: Female

DRUGS (5)
  1. ASPIRIN [Suspect]
     Indication: DRUG USE FOR UNKNOWN INDICATION
     Route: 048
  2. GLYBURIDE [Concomitant]
     Indication: BLOOD GLUCOSE INCREASED
     Route: 048
  3. AVALIDE [Concomitant]
     Indication: CARDIAC DISORDER
     Route: 048
  4. ATENOLOL [Concomitant]
     Indication: HYPERTENSION
     Dosage: 1/2 PILL 3 TIMES DAILY (100MG)
     Route: 048
  5. ZETIA [Concomitant]
     Indication: BLOOD CHOLESTEROL INCREASED
     Route: 048

REACTIONS (2)
  - EPISTAXIS [None]
  - RECTAL HAEMORRHAGE [None]
